FAERS Safety Report 4627098-X (Version None)
Quarter: 2005Q2

REPORT INFORMATION
  Report Type: 
  Country: None (occurrence: None)
  Receive Date: 20050405
  Receipt Date: 20050324
  Transmission Date: 20051028
  Serious: Yes (Other)
  Sender: FDA-Public Use
  Company Number: PHNR2005AU00681

PATIENT

DRUGS (1)
  1. LAMPRENE [Suspect]
     Indication: PYODERMA GANGRENOSUM
     Route: 048

REACTIONS (2)
  - CONDITION AGGRAVATED [None]
  - PYODERMA GANGRENOSUM [None]
